FAERS Safety Report 14623051 (Version 1)
Quarter: 2018Q1

REPORT INFORMATION
  Report Type: Spontaneous
  Country: CO (occurrence: CO)
  Receive Date: 20180311
  Receipt Date: 20180311
  Transmission Date: 20180509
  Serious: Yes (Hospitalization)
  Sender: FDA-Public Use
  Company Number: CO-AMGEN-COLSP2018010379

PATIENT
  Age: 54 Year
  Sex: Female

DRUGS (8)
  1. CALCIUM PLUS VITAMIN D [Concomitant]
     Active Substance: CALCIUM\VITAMIN D
     Indication: CALCIUM DEFICIENCY
     Dosage: 1 DF, DAILY
     Dates: start: 2014
  2. PREDNISOLONE. [Concomitant]
     Active Substance: PREDNISOLONE
     Indication: INFLAMMATION
  3. METHOTREXATE. [Concomitant]
     Active Substance: METHOTREXATE
     Indication: INFLAMMATION
     Dosage: UNK
  4. PREDNISOLONE. [Concomitant]
     Active Substance: PREDNISOLONE
     Indication: PAIN
     Dosage: 1 DF, DAILY
     Dates: start: 1990
  5. ACETAMINOPHEN. [Concomitant]
     Active Substance: ACETAMINOPHEN
     Dosage: UNK
     Dates: start: 2000
  6. METHOTREXATE. [Concomitant]
     Active Substance: METHOTREXATE
     Indication: PAIN
     Dosage: 0.60 ML, WEEKLY
     Dates: start: 2000
  7. ENBREL [Suspect]
     Active Substance: ETANERCEPT
     Indication: RHEUMATOID ARTHRITIS
     Dosage: 50 MG, WEEKLY
     Route: 058
     Dates: start: 201404
  8. FOLIC ACID. [Concomitant]
     Active Substance: FOLIC ACID
     Dosage: 5 MG, UNK
     Dates: start: 1990

REACTIONS (9)
  - Alopecia [Recovered/Resolved]
  - Urinary tract infection [Not Recovered/Not Resolved]
  - Swelling [Unknown]
  - Osteoporosis [Not Recovered/Not Resolved]
  - Headache [Not Recovered/Not Resolved]
  - Skin hyperpigmentation [Not Recovered/Not Resolved]
  - Poor quality sleep [Not Recovered/Not Resolved]
  - Eye pain [Not Recovered/Not Resolved]
  - Rash [Not Recovered/Not Resolved]

NARRATIVE: CASE EVENT DATE: 2015
